FAERS Safety Report 22069145 (Version 2)
Quarter: 2023Q1

REPORT INFORMATION
  Report Type: Other
  Country: IL (occurrence: None)
  Receive Date: 20230307
  Receipt Date: 20230330
  Transmission Date: 20230417
  Serious: Yes (Hospitalization)
  Sender: FDA-Public Use
  Company Number: IL-ROCHE-3267279

PATIENT
  Age: 47 Year
  Sex: Female

DRUGS (2)
  1. MOSUNETUZUMAB [Suspect]
     Active Substance: MOSUNETUZUMAB
     Indication: Hairy cell leukaemia
     Route: 065
     Dates: start: 20230101
  2. MOSUNETUZUMAB [Suspect]
     Active Substance: MOSUNETUZUMAB
     Dosage: NEXT DOSES WERE ADMINISTERED AT A REDUCED INTENSITY - 10 MG FOLLOWED BY 30 MG (INSTEAD OF 60 MG).
     Route: 065

REACTIONS (4)
  - Dizziness [Unknown]
  - Pyrexia [Recovered/Resolved]
  - Vertigo [Recovered/Resolved]
  - Urinary tract infection [Recovered/Resolved]

NARRATIVE: CASE EVENT DATE: 20230115
